FAERS Safety Report 15916773 (Version 3)
Quarter: 2019Q4

REPORT INFORMATION
  Report Type: Report from Study
  Country: BR (occurrence: BR)
  Receive Date: 20190205
  Receipt Date: 20191202
  Transmission Date: 20200122
  Serious: Yes (Other)
  Sender: FDA-Public Use
  Company Number: BR-ROCHE-2255163

PATIENT
  Age: 43 Year
  Sex: Male
  Weight: 62 kg

DRUGS (1)
  1. XOLAIR [Suspect]
     Active Substance: OMALIZUMAB
     Indication: URTICARIA
     Route: 058
     Dates: start: 20181221

REACTIONS (4)
  - Urticaria [Unknown]
  - Pyrexia [Recovered/Resolved]
  - Swelling [Unknown]
  - Headache [Recovered/Resolved]

NARRATIVE: CASE EVENT DATE: 20181221
